FAERS Safety Report 6067580-4 (Version None)
Quarter: 2009Q1

REPORT INFORMATION
  Report Type: 
  Country: None (occurrence: None)
  Receive Date: 20090205
  Receipt Date: 20090127
  Transmission Date: 20090719
  Serious: Yes (Death, Hospitalization)
  Sender: FDA-Public Use
  Company Number: US-GILEAD-2008-0018787

PATIENT
  Sex: Male
  Weight: 78.088 kg

DRUGS (6)
  1. TRUVADA [Suspect]
     Indication: ACQUIRED IMMUNODEFICIENCY SYNDROME
     Route: 048
     Dates: start: 20070322, end: 20081024
  2. SUSTIVA [Suspect]
     Indication: ACQUIRED IMMUNODEFICIENCY SYNDROME
     Route: 048
     Dates: start: 20070322, end: 20081024
  3. BACTRIM DS [Concomitant]
     Indication: PROPHYLAXIS
     Route: 048
     Dates: start: 20070306, end: 20081024
  4. CLONIDINE HCL [Concomitant]
     Indication: HYPERTENSION
     Route: 048
     Dates: start: 20071202, end: 20081024
  5. HYDROCHLOROTHIAZIDE [Concomitant]
     Indication: HYPERTENSION
     Route: 048
     Dates: start: 20071102, end: 20081024
  6. PROCARDIA [Concomitant]
     Indication: HYPERTENSION

REACTIONS (1)
  - LACTIC ACIDOSIS [None]
